FAERS Safety Report 7623406-6 (Version None)
Quarter: 2011Q3

REPORT INFORMATION
  Report Type: 
  Country: None (occurrence: None)
  Receive Date: 20110720
  Receipt Date: 20110712
  Transmission Date: 20111222
  Serious: No
  Sender: FDA-Public Use
  Company Number: US-JNJFOC-20110704866

PATIENT
  Sex: Female
  Weight: 23.59 kg

DRUGS (3)
  1. SEROQUEL [Concomitant]
     Indication: BIPOLAR DISORDER
     Route: 048
     Dates: start: 20110401
  2. INVEGA [Suspect]
     Indication: BIPOLAR I DISORDER
     Route: 048
     Dates: start: 20110629
  3. LITHIUM CARBONATE [Concomitant]
     Indication: BIPOLAR DISORDER
     Route: 048
     Dates: start: 20110601

REACTIONS (3)
  - DRUG INEFFECTIVE [None]
  - DRUG ADMINISTERED TO PATIENT OF INAPPROPRIATE AGE [None]
  - DRUG PRESCRIBING ERROR [None]
